FAERS Safety Report 9900467 (Version 2)
Quarter: 2014Q2

REPORT INFORMATION
  Report Type: Report from Study
  Country: US (occurrence: US)
  Receive Date: 20140217
  Receipt Date: 20140602
  Transmission Date: 20141212
  Serious: Yes (Hospitalization, Other)
  Sender: FDA-Public Use
  Company Number: US-BIOGENIDEC-2014BI012866

PATIENT
  Age: 29 Year
  Sex: Female
  Weight: 38 kg

DRUGS (25)
  1. TYSABRI [Suspect]
     Indication: MULTIPLE SCLEROSIS
     Route: 042
     Dates: start: 20091102
  2. TYSABRI [Suspect]
     Indication: MULTIPLE SCLEROSIS
     Route: 042
  3. ACETAMINOPHEN [Concomitant]
     Indication: PREMEDICATION
     Route: 048
  4. AMITIZA [Concomitant]
  5. ASPIRIN [Concomitant]
     Route: 048
  6. BACLOFEN [Concomitant]
     Route: 037
  7. BENEFIBER [Concomitant]
  8. CALCIUM WITH VITAMIN D [Concomitant]
     Route: 048
  9. CLEOCIN T [Concomitant]
     Route: 061
  10. COLACE [Concomitant]
     Route: 048
  11. DUCOLAX [Concomitant]
     Route: 054
  12. ENSURE [Concomitant]
     Route: 048
  13. FERROUS SULFATE [Concomitant]
  14. FLEET ENEMA [Concomitant]
     Route: 054
  15. LORATADINE [Concomitant]
     Indication: PREMEDICATION
     Route: 048
  16. MIRALAX [Concomitant]
     Route: 048
  17. NEURONTIN [Concomitant]
     Route: 048
  18. SENNA LAXATIVE [Concomitant]
     Route: 048
  19. TAMSULOSIN ER [Concomitant]
  20. TRIAMCINOLONE [Concomitant]
  21. ULTRAM [Concomitant]
  22. VALTREX [Concomitant]
     Route: 048
  23. VITAMIN C [Concomitant]
     Route: 048
  24. VITAMIN D3 [Concomitant]
     Route: 048
  25. ZINC SULFATE [Concomitant]

REACTIONS (1)
  - Infected skin ulcer [Recovered/Resolved]
